FAERS Safety Report 5824758-X (Version None)
Quarter: 2008Q3

REPORT INFORMATION
  Report Type: 
  Country: None (occurrence: None)
  Receive Date: 20080722
  Receipt Date: 20080714
  Transmission Date: 20090109
  Serious: Yes (Other)
  Sender: FDA-Public Use
  Company Number: 2008018412

PATIENT
  Sex: Female

DRUGS (1)
  1. VISINE A.C. (ZINC SULFATE, TETRYZOLINE) [Suspect]
     Indication: HYPERSENSITIVITY
     Dosage: AS NEEDED, OPHTHALMIC
     Route: 047
     Dates: start: 20030701, end: 20080627

REACTIONS (1)
  - MYDRIASIS [None]
